FAERS Safety Report 8523065 (Version 4)
Quarter: 2013Q3

REPORT INFORMATION
  Report Type: Spontaneous
  Country: US (occurrence: US)
  Receive Date: 20120420
  Receipt Date: 20130807
  Transmission Date: 20140515
  Serious: Yes (Hospitalization, Other)
  Sender: FDA-Public Use
  Company Number: US-UCBSA-057010

PATIENT
  Age: 65 Year
  Sex: Male
  Weight: 99.79 kg

DRUGS (9)
  1. ZAROXOLYN [Suspect]
     Indication: HYPERTENSION
     Route: 048
     Dates: end: 20120330
  2. REVATIO [Suspect]
     Indication: LUNG DISORDER
     Route: 048
     Dates: start: 2000, end: 20130308
  3. REVATIO [Suspect]
     Indication: PULMONARY EMBOLISM
     Route: 048
     Dates: start: 2000, end: 20130308
  4. REVATIO [Suspect]
     Indication: PULMONARY HYPERTENSION
     Route: 048
     Dates: start: 2000, end: 20130308
  5. VIAGRA [Suspect]
     Dosage: UNKNOWN DOSE
     Dates: start: 2012
  6. TRACLEER [Concomitant]
     Indication: LUNG DISORDER
     Dosage: UNKNOWN DOSE
  7. ALLOPURINOL [Concomitant]
     Indication: GOUT
     Dosage: UNKNOWN DOSE
  8. COUMADIN [Concomitant]
     Dosage: UNKNOWN DOSE
  9. METFORMIN [Concomitant]
     Indication: DIABETES MELLITUS
     Dosage: UNKNOWN DOSE

REACTIONS (12)
  - Myocardial infarction [Unknown]
  - Heart rate decreased [Unknown]
  - Blood pressure abnormal [Unknown]
  - Dyspnoea [Unknown]
  - Fall [Unknown]
  - Pulmonary embolism [Unknown]
  - Upper limb fracture [Unknown]
  - Gait disturbance [Unknown]
  - Body height abnormal [Unknown]
  - Dysuria [Unknown]
  - Micturition disorder [Unknown]
  - Asthenia [Unknown]
